FAERS Safety Report 6550274-6 (Version None)
Quarter: 2010Q1

REPORT INFORMATION
  Report Type: 
  Country: None (occurrence: None)
  Receive Date: 20100125
  Receipt Date: 20100118
  Transmission Date: 20100710
  Serious: Yes (Death, Life-Threatening)
  Sender: FDA-Public Use
  Company Number: GB-TEVA-188079ISR

PATIENT
  Age: 11 Year
  Sex: Male
  Weight: 37.5 kg

DRUGS (4)
  1. ETOPOSIDE [Suspect]
     Indication: LEUKAEMIA RECURRENT
     Route: 042
     Dates: start: 20090101, end: 20090109
  2. ETOPOSIDE [Concomitant]
  3. CLOFARABINE [Suspect]
     Indication: LEUKAEMIA RECURRENT
     Route: 042
     Dates: start: 20090101, end: 20090109
  4. CYCLOPHOSPHAMIDE [Suspect]
     Indication: LEUKAEMIA RECURRENT
     Route: 042
     Dates: start: 20090101, end: 20090109

REACTIONS (17)
  - ABDOMINAL DISCOMFORT [None]
  - ABDOMINAL TENDERNESS [None]
  - COMPUTERISED TOMOGRAM ABNORMAL [None]
  - CORONA VIRUS INFECTION [None]
  - DIARRHOEA [None]
  - ENTEROCOCCAL INFECTION [None]
  - HEADACHE [None]
  - HEPATITIS CHOLESTATIC [None]
  - HYPERTENSION [None]
  - HYPOTENSION [None]
  - ILEUS [None]
  - LIVER SCAN ABNORMAL [None]
  - LOSS OF CONSCIOUSNESS [None]
  - NAUSEA [None]
  - NEUTROPENIC COLITIS [None]
  - SEPSIS [None]
  - VOMITING [None]
